FAERS Safety Report 5099755-5 (Version None)
Quarter: 2006Q3

REPORT INFORMATION
  Report Type: 
  Country: None (occurrence: None)
  Receive Date: 20060906
  Receipt Date: 20060824
  Transmission Date: 20061208
  Serious: Yes (Death, Hospitalization)
  Sender: FDA-Public Use
  Company Number: 2006103420

PATIENT
  Age: 58 Year
  Sex: Male
  Weight: 88 kg

DRUGS (10)
  1. SUTENT [Suspect]
     Indication: RENAL CELL CARCINOMA STAGE UNSPECIFIED
     Dosage: 50 MG (50 MG, DAILY), ORAL
     Route: 048
     Dates: start: 20060713, end: 20060810
  2. LOSARTAN POTASSIUM [Concomitant]
  3. SALBUTAMOL (SALBUTAMOL) [Concomitant]
  4. IPRATROPIUM BROMIDE [Concomitant]
  5. BUDESONIDE [Concomitant]
  6. THEOPHYLLINE [Concomitant]
  7. PREDNISOLONE [Concomitant]
  8. INDAPAMIDE [Concomitant]
  9. ALENDRONATE SODIUM [Concomitant]
  10. OXYGEN (OXYGEN) [Concomitant]

REACTIONS (14)
  - CHRONIC OBSTRUCTIVE PULMONARY DISEASE [None]
  - DECREASED APPETITE [None]
  - DEHYDRATION [None]
  - DYSPNOEA [None]
  - LETHARGY [None]
  - MALAISE [None]
  - MALIGNANT NEOPLASM PROGRESSION [None]
  - METASTATIC RENAL CELL CARCINOMA [None]
  - NAUSEA [None]
  - ORAL INTAKE REDUCED [None]
  - ORAL PAIN [None]
  - PAIN [None]
  - PULMONARY EMBOLISM [None]
  - PULSE ABSENT [None]
